FAERS Safety Report 5326910-9 (Version None)
Quarter: 2007Q2

REPORT INFORMATION
  Report Type: 
  Country: None (occurrence: None)
  Receive Date: 20070511
  Receipt Date: 20070426
  Transmission Date: 20071010
  Serious: Yes (Other)
  Sender: FDA-Public Use
  Company Number: 100#08#2007-01471

PATIENT
  Age: 18 Year
  Sex: Male

DRUGS (4)
  1. TEGRETOL [Suspect]
     Indication: EPILEPSY
     Dosage: 200 MG
  2. TEGRETOL [Suspect]
     Indication: MENTAL DISORDER
     Dosage: 200 MG
  3. HYDANTAL (HYDANTAL) (PHENYTOIN) [Suspect]
     Indication: MENTAL DISORDER
     Dosage: 100 MG
  4. GARDENAL (PHENOBARBITAL) [Suspect]
     Indication: EPILEPSY
     Dosage: 100 MG

REACTIONS (3)
  - CALCINOSIS [None]
  - GINGIVAL HYPERPLASIA [None]
  - NEOPLASM [None]
